FAERS Safety Report 8510242-1 (Version None)
Quarter: 2012Q3

REPORT INFORMATION
  Report Type: 
  Country: None (occurrence: None)
  Receive Date: 20120713
  Receipt Date: 20120705
  Transmission Date: 20120928
  Serious: Yes (Hospitalization)
  Sender: FDA-Public Use
  Company Number: BR-B.I. PHARMACEUTICALS,INC./RIDGEFIELD-2012-BR-00484BR

PATIENT
  Age: 68 Year
  Sex: Male

DRUGS (3)
  1. CHEMOTHERAPY [Concomitant]
     Indication: RENAL CANCER
  2. CHEMOTHERAPY [Concomitant]
     Indication: OESOPHAGEAL CARCINOMA
  3. TRAYENTA [Suspect]
     Indication: TYPE 2 DIABETES MELLITUS
     Dosage: 5 MG
     Route: 048
     Dates: start: 20120301, end: 20120501

REACTIONS (2)
  - RENAL CANCER [None]
  - HYPOGLYCAEMIA [None]
